FAERS Safety Report 7134373-6 (Version None)
Quarter: 2010Q4

REPORT INFORMATION
  Report Type: 
  Country: None (occurrence: None)
  Receive Date: 20101130
  Receipt Date: 20101130
  Transmission Date: 20110411
  Serious: Yes (Other)
  Sender: FDA-Public Use
  Company Number: None

PATIENT
  Age: 9 Year
  Sex: Female
  Weight: 27.2158 kg

DRUGS (2)
  1. ALVESCO [Suspect]
     Dates: start: 20100803, end: 20100913
  2. XOPENEX [Suspect]
     Dates: start: 20100803, end: 20100826

REACTIONS (3)
  - ANXIETY [None]
  - FEAR [None]
  - NAUSEA [None]
